FAERS Safety Report 23075044 (Version 1)
Quarter: 2023Q4

REPORT INFORMATION
  Report Type: Spontaneous
  Country: US (occurrence: US)
  Receive Date: 20231017
  Receipt Date: 20231017
  Transmission Date: 20240110
  Serious: Yes (Death, Other)
  Sender: FDA-Public Use
  Company Number: US-GSK-US2023141245

PATIENT

DRUGS (1)
  1. ANORO ELLIPTA [Suspect]
     Active Substance: UMECLIDINIUM BROMIDE\VILANTEROL TRIFENATATE
     Indication: Chronic obstructive pulmonary disease
     Dosage: 1 PUFF(S), QD 1 INHALATION
     Route: 055
     Dates: start: 202001, end: 20230917

REACTIONS (2)
  - Death [Fatal]
  - Brain neoplasm [Unknown]

NARRATIVE: CASE EVENT DATE: 20230917
